FAERS Safety Report 12281414 (Version 1)
Quarter: 2016Q2

REPORT INFORMATION
  Report Type: Spontaneous
  Country: US (occurrence: US)
  Receive Date: 20160419
  Receipt Date: 20160419
  Transmission Date: 20160815
  Serious: No
  Sender: FDA-Public Use
  Company Number: US-ACTAVIS-2015-26455

PATIENT

DRUGS (1)
  1. POTASSIUM CHLORIDE EXTENDED RELEASE [Suspect]
     Active Substance: POTASSIUM CHLORIDE
     Indication: PRODUCT USED FOR UNKNOWN INDICATION
     Dosage: 20 MEQ, UNKNOWN
     Route: 065

REACTIONS (2)
  - Medication residue present [Unknown]
  - Drug ineffective [Unknown]
